FAERS Safety Report 23841611 (Version 2)
Quarter: 2024Q2

REPORT INFORMATION
  Report Type: Report from Study
  Country: US (occurrence: US)
  Receive Date: 20240510
  Receipt Date: 20240603
  Transmission Date: 20240716
  Serious: Yes (Hospitalization)
  Sender: FDA-Public Use
  Company Number: US-Eisai-EC-2024-164722

PATIENT
  Age: 83 Year
  Sex: Female
  Weight: 65 kg

DRUGS (1)
  1. LENVIMA [Suspect]
     Active Substance: LENVATINIB
     Indication: Hepatic cancer
     Route: 048
     Dates: start: 20240416, end: 202405

REACTIONS (6)
  - Ammonia abnormal [Recovering/Resolving]
  - Lethargy [Unknown]
  - Decreased appetite [Unknown]
  - Confusional state [Unknown]
  - Asthenia [Unknown]
  - Fatigue [Unknown]

NARRATIVE: CASE EVENT DATE: 20240401
